FAERS Safety Report 25026365 (Version 7)
Quarter: 2025Q3

REPORT INFORMATION
  Report Type: Spontaneous
  Country: US (occurrence: US)
  Receive Date: 20250301
  Receipt Date: 20250830
  Transmission Date: 20251021
  Serious: No
  Sender: UNITED THERAPEUTICS
  Company Number: US-UNITED THERAPEUTICS-UNT-2025-003134

PATIENT
  Age: 60 Year
  Sex: Male
  Weight: 124.72 kg

DRUGS (24)
  1. ORENITRAM [Suspect]
     Active Substance: TREPROSTINIL
     Indication: Pulmonary arterial hypertension
     Dosage: 0.125 MG, TID
     Dates: start: 202501, end: 2025
  2. ORENITRAM [Suspect]
     Active Substance: TREPROSTINIL
     Dosage: 0.5 MG (1 TABLET OF 0.25 MG AND 2 TABLETS OF 0.125 MG), TID
     Dates: start: 2025, end: 2025
  3. ORENITRAM [Suspect]
     Active Substance: TREPROSTINIL
     Dosage: 0.75 MG, TID
     Dates: start: 2025, end: 2025
  4. ORENITRAM [Suspect]
     Active Substance: TREPROSTINIL
     Dosage: 1.5 MG, TID
     Dates: start: 2025, end: 20250420
  5. ORENITRAM [Suspect]
     Active Substance: TREPROSTINIL
     Dosage: 1.5 MG, TID
     Dates: start: 20250422, end: 2025
  6. ORENITRAM [Suspect]
     Active Substance: TREPROSTINIL
     Dosage: 1.75 MG, TID
     Dates: start: 2025, end: 202505
  7. ORENITRAM [Suspect]
     Active Substance: TREPROSTINIL
     Dosage: 2 MG, TID
     Dates: start: 202505, end: 2025
  8. ORENITRAM [Suspect]
     Active Substance: TREPROSTINIL
     Dosage: 2.25 MG, TID
     Dates: start: 2025
  9. ORENITRAM [Suspect]
     Active Substance: TREPROSTINIL
  10. ORENITRAM [Suspect]
     Active Substance: TREPROSTINIL
  11. ORENITRAM [Suspect]
     Active Substance: TREPROSTINIL
     Indication: Pulmonary arterial hypertension
  12. ORENITRAM [Suspect]
     Active Substance: TREPROSTINIL
     Indication: Pulmonary arterial hypertension
  13. ORENITRAM [Suspect]
     Active Substance: TREPROSTINIL
     Indication: Pulmonary arterial hypertension
  14. TADALAFIL [Suspect]
     Active Substance: TADALAFIL
     Indication: Product used for unknown indication
  15. METFORMIN HYDROCHLORIDE [Concomitant]
     Active Substance: METFORMIN HYDROCHLORIDE
     Indication: Product used for unknown indication
  16. OMEPRAZOLE [Concomitant]
     Active Substance: OMEPRAZOLE
     Indication: Product used for unknown indication
  17. MACITENTAN\TADALAFIL [Concomitant]
     Active Substance: MACITENTAN\TADALAFIL
     Indication: Product used for unknown indication
  18. BASAGLAR [Concomitant]
     Active Substance: INSULIN GLARGINE
     Indication: Product used for unknown indication
  19. ATORVASTATIN CALCIUM [Concomitant]
     Active Substance: ATORVASTATIN CALCIUM
     Indication: Product used for unknown indication
  20. BUMETANIDE [Concomitant]
     Active Substance: BUMETANIDE
     Indication: Product used for unknown indication
  21. LISINOPRIL [Concomitant]
     Active Substance: LISINOPRIL
     Indication: Product used for unknown indication
  22. OXYGEN [Concomitant]
     Active Substance: OXYGEN
     Indication: Product used for unknown indication
  23. ONDANSETRON HYDROCHLORIDE [Concomitant]
     Active Substance: ONDANSETRON HYDROCHLORIDE
     Indication: Product used for unknown indication
  24. TUMS [Concomitant]
     Active Substance: CALCIUM CARBONATE
     Indication: Product used for unknown indication

REACTIONS (8)
  - Diarrhoea [Recovered/Resolved]
  - Diplopia [Recovered/Resolved]
  - Hypertension [Unknown]
  - Oxygen saturation decreased [Unknown]
  - Dyspepsia [Unknown]
  - Gastrointestinal disorder [Unknown]
  - Vitreous floaters [Unknown]
  - Product use issue [Recovered/Resolved]

NARRATIVE: CASE EVENT DATE: 20250101
